FAERS Safety Report 18536759 (Version 3)
Quarter: 2020Q4

REPORT INFORMATION
  Report Type: Report from Study
  Country: CO (occurrence: CO)
  Receive Date: 20201123
  Receipt Date: 20201222
  Transmission Date: 20210114
  Serious: Yes (Hospitalization)
  Sender: FDA-Public Use
  Company Number: NVSC2020CO310420

PATIENT
  Age: 51 Year
  Sex: Male
  Weight: 90 kg

DRUGS (2)
  1. COSENTYX [Suspect]
     Active Substance: SECUKINUMAB
     Indication: PSORIASIS
     Dosage: 300 MG, QMO
     Route: 058
     Dates: start: 20190820, end: 20201009
  2. ENOXAPARIN [Concomitant]
     Active Substance: ENOXAPARIN
     Indication: ANTICOAGULANT THERAPY
     Dosage: 40 MG, QD
     Route: 058

REACTIONS (6)
  - Malaise [Unknown]
  - Choking [Not Recovered/Not Resolved]
  - Dyspnoea [Unknown]
  - Skin plaque [Unknown]
  - Bone pain [Unknown]
  - COVID-19 [Recovered/Resolved]

NARRATIVE: CASE EVENT DATE: 20201026
